FAERS Safety Report 14803628 (Version 1)
Quarter: 2018Q2

REPORT INFORMATION
  Report Type: Spontaneous
  Country: US (occurrence: US)
  Receive Date: 20180425
  Receipt Date: 20180425
  Transmission Date: 20180711
  Serious: No
  Sender: FDA-Public Use
  Company Number: US-ASTRAZENECA-2018SE38377

PATIENT
  Age: 65 Year
  Sex: Female
  Weight: 52.2 kg

DRUGS (3)
  1. IBRANCE [Suspect]
     Active Substance: PALBOCICLIB
     Indication: BREAST CANCER METASTATIC
     Route: 048
     Dates: start: 20170618
  2. FASLODEX [Suspect]
     Active Substance: FULVESTRANT
     Indication: BREAST CANCER METASTATIC
     Dosage: ONCE A MONTH
     Route: 030
  3. POTASSIUM CITRATE. [Concomitant]
     Active Substance: POTASSIUM CITRATE
     Indication: NEPHROLITHIASIS

REACTIONS (5)
  - Muscle spasms [Unknown]
  - Epistaxis [Recovered/Resolved]
  - Alopecia [Unknown]
  - Alopecia [Not Recovered/Not Resolved]
  - Diarrhoea [Unknown]
